FAERS Safety Report 5599860-0 (Version None)
Quarter: 2008Q1

REPORT INFORMATION
  Report Type: 
  Country: None (occurrence: None)
  Receive Date: 20080117
  Receipt Date: 20080117
  Transmission Date: 20080703
  Serious: Yes (Death)
  Sender: FDA-Public Use
  Company Number: None

PATIENT
  Sex: Male
  Weight: 83.2 kg

DRUGS (3)
  1. MAGNEVIST [Suspect]
     Indication: FOOT FRACTURE
     Dosage: 15 ML ONCE IVP
     Route: 042
     Dates: start: 20080114
  2. MAGNEVIST [Suspect]
     Indication: LOCALISED INFECTION
     Dosage: 15 ML ONCE IVP
     Route: 042
     Dates: start: 20080114
  3. MAGNEVIST [Suspect]
     Indication: OSTEOMYELITIS
     Dosage: 15 ML ONCE IVP
     Route: 042
     Dates: start: 20080114

REACTIONS (1)
  - CARDIAC ARREST [None]
